FAERS Safety Report 4648219-9 (Version None)
Quarter: 2005Q2

REPORT INFORMATION
  Report Type: 
  Country: None (occurrence: None)
  Receive Date: 20050331
  Receipt Date: 20050110
  Transmission Date: 20051028
  Serious: No
  Sender: FDA-Public Use
  Company Number: 05P-163-0285841-00

PATIENT
  Age: 21 Year
  Sex: Female
  Weight: 72.5755 kg

DRUGS (4)
  1. HUMIRA [Suspect]
     Indication: RHEUMATOID ARTHRITIS
     Dosage: 40 MG, 1IN 2 WK, SUBCUTANEOUS
     Route: 058
     Dates: start: 20031001
  2. LEVOTHYROXINE SODIUM [Concomitant]
  3. BIRTH CONTROL PILL [Concomitant]
  4. MULTI-VITAMINS [Concomitant]

REACTIONS (3)
  - ALOPECIA [None]
  - ANAEMIA [None]
  - HYPOTHYROIDISM [None]
